FAERS Safety Report 25033056 (Version 3)
Quarter: 2025Q3

REPORT INFORMATION
  Report Type: Spontaneous
  Country: CA (occurrence: CA)
  Receive Date: 20250303
  Receipt Date: 20250908
  Transmission Date: 20251021
  Serious: Yes (Other)
  Sender: MYLAN
  Company Number: CA-MYLANLABS-2025M1017710

PATIENT
  Age: 55 Year
  Sex: Female

DRUGS (11)
  1. AMLODIPINE [Suspect]
     Active Substance: AMLODIPINE BESYLATE
     Indication: Proteinuria
     Dosage: 10 MILLIGRAM, QD (1 EVERY 1 DAYS)
  2. AMLODIPINE [Suspect]
     Active Substance: AMLODIPINE BESYLATE
     Indication: Hypertension
  3. AMLODIPINE [Suspect]
     Active Substance: AMLODIPINE BESYLATE
     Indication: Congenital cystic kidney disease
  4. AMLODIPINE [Suspect]
     Active Substance: AMLODIPINE BESYLATE
     Indication: Proteinuria
  5. AMLODIPINE [Suspect]
     Active Substance: AMLODIPINE BESYLATE
     Indication: Hypertension
  6. CANDESARTAN [Suspect]
     Active Substance: CANDESARTAN
     Indication: Proteinuria
     Dosage: 16 MILLIGRAM, QD (1 EVERY 1 DAYS)
  7. CANDESARTAN [Suspect]
     Active Substance: CANDESARTAN
     Indication: Hypertension
  8. CANDESARTAN [Suspect]
     Active Substance: CANDESARTAN
     Indication: Congenital cystic kidney disease
  9. HYDROCHLOROTHIAZIDE [Suspect]
     Active Substance: HYDROCHLOROTHIAZIDE
     Indication: Proteinuria
     Dosage: 12.5 MILLIGRAM, QD (1 EVERY 1 DAYS)
  10. HYDROCHLOROTHIAZIDE [Suspect]
     Active Substance: HYDROCHLOROTHIAZIDE
     Indication: Hypertension
  11. HYDROCHLOROTHIAZIDE [Suspect]
     Active Substance: HYDROCHLOROTHIAZIDE
     Indication: Congenital cystic kidney disease

REACTIONS (3)
  - Congenital cystic kidney disease [Unknown]
  - Condition aggravated [Unknown]
  - Drug ineffective [Unknown]
